FAERS Safety Report 4475212-1 (Version None)
Quarter: 2004Q3

REPORT INFORMATION
  Report Type: 
  Country: None (occurrence: None)
  Receive Date: 20040923
  Receipt Date: 20040817
  Transmission Date: 20050211
  Serious: No
  Sender: FDA-Public Use
  Company Number: USA040671020

PATIENT
  Age: 74 Year
  Sex: Male
  Weight: 80 kg

DRUGS (7)
  1. FORTEO [Suspect]
     Dosage: 20 UG DAY
     Dates: start: 20030101
  2. FOSAMAX [Concomitant]
  3. LEVOTHROID [Concomitant]
  4. ANDROGEL [Concomitant]
  5. LIPITOR [Concomitant]
  6. PRILOSEC [Concomitant]
  7. TRICOR [Concomitant]

REACTIONS (4)
  - BLOOD PRESSURE DECREASED [None]
  - BRADYCARDIA [None]
  - DIZZINESS [None]
  - NIGHT SWEATS [None]
